FAERS Safety Report 9968810 (Version 1)
Quarter: 2014Q1

REPORT INFORMATION
  Report Type: Report from Study
  Country: US (occurrence: US)
  Receive Date: 20140306
  Receipt Date: 20140306
  Transmission Date: 20141002
  Serious: No
  Sender: FDA-Public Use
  Company Number: US-ABBVIE-13P-163-1145052-00

PATIENT
  Age: 29 Year
  Sex: Female

DRUGS (7)
  1. HUMIRA [Suspect]
     Indication: CROHN^S DISEASE
     Dates: start: 201306
  2. FLAGYL [Suspect]
     Indication: FISTULA
     Dates: end: 20130823
  3. FLAGYL [Suspect]
     Indication: ABSCESS
  4. PENTASA [Concomitant]
     Indication: CROHN^S DISEASE
     Dosage: 4 PILLS
  5. CIPRO [Concomitant]
     Indication: FISTULA
  6. CIPRO [Concomitant]
     Indication: ABSCESS
  7. LEXAPRO [Concomitant]
     Indication: ANXIETY

REACTIONS (4)
  - Hypoaesthesia [Recovered/Resolved]
  - Hypoaesthesia [Recovered/Resolved]
  - Pain in extremity [Recovered/Resolved]
  - Pain in extremity [Recovered/Resolved]
